FAERS Safety Report 7213025-8 (Version None)
Quarter: 2011Q1

REPORT INFORMATION
  Report Type: 
  Country: None (occurrence: None)
  Receive Date: 20110106
  Receipt Date: 20101228
  Transmission Date: 20110831
  Serious: Yes (Hospitalization)
  Sender: FDA-Public Use
  Company Number: B0677682A

PATIENT
  Sex: Female

DRUGS (14)
  1. VANCOMYCIN HCL [Suspect]
     Route: 042
     Dates: start: 20100723, end: 20100808
  2. PROZAC [Concomitant]
     Route: 065
  3. ZOVIRAX [Suspect]
     Route: 065
     Dates: start: 20100719, end: 20100816
  4. CLAFORAN [Suspect]
     Route: 042
     Dates: start: 20100723, end: 20100728
  5. CIPROFLOXACIN HYDROCHLORIDE [Suspect]
     Route: 065
     Dates: start: 20100729, end: 20100808
  6. CANCIDAS [Suspect]
     Route: 042
     Dates: start: 20100724, end: 20100803
  7. TAZOCILLINE [Suspect]
     Route: 042
     Dates: start: 20100729, end: 20100803
  8. XANAX [Concomitant]
     Route: 065
  9. FLAGYL [Suspect]
     Route: 065
     Dates: start: 20100719, end: 20100803
  10. TAHOR [Concomitant]
     Route: 065
  11. BACTRIM [Suspect]
     Route: 065
     Dates: start: 20100731, end: 20100812
  12. NEXIUM [Concomitant]
     Route: 065
  13. IMIPENEM AND CILASTATIN [Suspect]
     Route: 042
     Dates: start: 20100810, end: 20100813
  14. KARDEGIC [Concomitant]
     Route: 065

REACTIONS (15)
  - ORAL MUCOSAL ERUPTION [None]
  - GENITAL RASH [None]
  - PYREXIA [None]
  - TACHYCARDIA [None]
  - EOSINOPHILIA [None]
  - BLOOD CULTURE POSITIVE [None]
  - DERMATITIS EXFOLIATIVE GENERALISED [None]
  - PRURITUS [None]
  - EYE IRRITATION [None]
  - LYMPHADENOPATHY [None]
  - OEDEMA PERIPHERAL [None]
  - DRUG RASH WITH EOSINOPHILIA AND SYSTEMIC SYMPTOMS [None]
  - DERMATITIS BULLOUS [None]
  - RASH MACULO-PAPULAR [None]
  - RENAL FAILURE ACUTE [None]
